FAERS Safety Report 6341129-0 (Version None)
Quarter: 2009Q3

REPORT INFORMATION
  Report Type: 
  Country: None (occurrence: None)
  Receive Date: 20090904
  Receipt Date: 20090414
  Transmission Date: 20100115
  Serious: No
  Sender: FDA-Public Use
  Company Number: A0765299A

PATIENT
  Age: 69 Year
  Sex: Female

DRUGS (10)
  1. REQUIP [Suspect]
     Indication: RESTLESS LEGS SYNDROME
     Dosage: 1MG VARIABLE DOSE
     Route: 048
     Dates: start: 20050101
  2. REQUIP XL [Suspect]
     Indication: RESTLESS LEGS SYNDROME
     Dosage: 4MG PER DAY
     Route: 048
     Dates: start: 20080101
  3. ROPINIROLE [Suspect]
     Indication: RESTLESS LEGS SYNDROME
     Dosage: 1MG VARIABLE DOSE
     Route: 048
     Dates: start: 20080501, end: 20080101
  4. NEXIUM [Concomitant]
  5. LIDODERM [Concomitant]
  6. SIMVASTATIN [Concomitant]
  7. ACTONEL [Concomitant]
  8. CYCLOBENZAPRINE [Concomitant]
  9. AMBIEN [Concomitant]
  10. OXYCODONE [Concomitant]

REACTIONS (1)
  - DRUG INEFFECTIVE [None]
